FAERS Safety Report 7081191-3 (Version None)
Quarter: 2010Q4

REPORT INFORMATION
  Report Type: 
  Country: None (occurrence: None)
  Receive Date: 20101103
  Receipt Date: 20101025
  Transmission Date: 20110411
  Serious: No
  Sender: FDA-Public Use
  Company Number: US-ROXANE LABORATORIES, INC.-2010-RO-01420RO

PATIENT
  Sex: Female

DRUGS (8)
  1. MERCAPTOPURINE [Suspect]
     Indication: COLITIS ULCERATIVE
     Dosage: 50 MG
     Route: 048
     Dates: start: 20100621
  2. ASACOL [Concomitant]
  3. FORTICAL [Concomitant]
  4. ROWASA [Concomitant]
  5. LOMOTIL [Concomitant]
  6. CLARITIN [Concomitant]
     Indication: SEASONAL ALLERGY
  7. MULTI-VITAMIN [Concomitant]
  8. VITAMIN D [Concomitant]

REACTIONS (1)
  - FLATULENCE [None]
